FAERS Safety Report 8222106-1 (Version None)
Quarter: 2012Q1

REPORT INFORMATION
  Report Type: 
  Country: None (occurrence: None)
  Receive Date: 20120314
  Receipt Date: 20120306
  Transmission Date: 20120608
  Serious: Yes (Hospitalization)
  Sender: FDA-Public Use
  Company Number: ACO_29401_2012

PATIENT
  Age: 72 Year
  Sex: Female
  Weight: 88.4 kg

DRUGS (12)
  1. EXFORGE [Concomitant]
  2. METFORMIN HCL [Concomitant]
  3. AVONEX [Concomitant]
  4. DETROL LA [Concomitant]
  5. TYLENOL /00020001/ (PARACETAMOL) [Concomitant]
  6. MULTIVITAMIN /00831701/ (VITAMINS NOS) [Concomitant]
  7. ERGOCALCIFEROL [Concomitant]
  8. KEPPRA [Concomitant]
  9. PREMARIN [Concomitant]
  10. AMPYRA [Suspect]
     Indication: GAIT DISTURBANCE
     Dosage: 10 MG, BID, ORAL
     Route: 048
     Dates: start: 20110101, end: 20120124
  11. SIMVASTATIN [Concomitant]
  12. ENABLEX /01760401/ (DARIFENACIN) [Concomitant]

REACTIONS (3)
  - URINARY TRACT INFECTION [None]
  - GRAND MAL CONVULSION [None]
  - GAIT DISTURBANCE [None]
